FAERS Safety Report 10576322 (Version 2)
Quarter: 2015Q1

REPORT INFORMATION
  Report Type: Spontaneous
  Country: US (occurrence: US)
  Receive Date: 20141111
  Receipt Date: 20150223
  Transmission Date: 20150720
  Serious: Yes (Hospitalization)
  Sender: FDA-Public Use
  Company Number: US-BAYER-2014-165580

PATIENT
  Age: 32 Year
  Sex: Female
  Weight: 99.77 kg

DRUGS (3)
  1. MIRENA [Suspect]
     Active Substance: LEVONORGESTREL
     Indication: CONTRACEPTION
     Dosage: 20 MCG/24HR, CONT
     Route: 015
     Dates: start: 20070921, end: 20121112
  2. HYDROXYZINE [Concomitant]
     Active Substance: HYDROXYZINE\HYDROXYZINE HYDROCHLORIDE
     Dosage: UNK
     Route: 048
     Dates: start: 2002
  3. PROZAC [Concomitant]
     Active Substance: FLUOXETINE HYDROCHLORIDE
     Dosage: UNK
     Route: 048
     Dates: start: 2002

REACTIONS (10)
  - Depression [None]
  - Emotional distress [None]
  - Anxiety [None]
  - Injury [None]
  - Pain [None]
  - Pelvic pain [None]
  - Uterine perforation [None]
  - Procedural pain [Not Recovered/Not Resolved]
  - Device misuse [None]
  - Device issue [None]

NARRATIVE: CASE EVENT DATE: 201209
